FAERS Safety Report 6680660-5 (Version None)
Quarter: 2010Q2

REPORT INFORMATION
  Report Type: 
  Country: None (occurrence: None)
  Receive Date: 20100414
  Receipt Date: 20100406
  Transmission Date: 20101027
  Serious: Yes (Hospitalization)
  Sender: FDA-Public Use
  Company Number: FR-JNJFOC-20100401208

PATIENT
  Sex: Female

DRUGS (4)
  1. DURAGESIC-100 [Suspect]
     Indication: CANCER PAIN
     Route: 062
  2. FENTANYL CITRATE [Suspect]
     Indication: CANCER PAIN
     Route: 048
  3. OXYCONTIN [Suspect]
     Indication: CANCER PAIN
     Route: 048
  4. CHEMOTHERAPY [Concomitant]
     Indication: ANAL CANCER
     Route: 065

REACTIONS (5)
  - ACCIDENTAL OVERDOSE [None]
  - BRADYPNOEA [None]
  - MALAISE [None]
  - OXYGEN SATURATION DECREASED [None]
  - SOMNOLENCE [None]
